FAERS Safety Report 6381709-X (Version None)
Quarter: 2009Q3

REPORT INFORMATION
  Report Type: 
  Country: None (occurrence: None)
  Receive Date: 20090930
  Receipt Date: 20090918
  Transmission Date: 20100115
  Serious: Yes (Other)
  Sender: FDA-Public Use
  Company Number: PHHY2009IT40344

PATIENT
  Sex: Female

DRUGS (2)
  1. ZOMETA [Suspect]
     Indication: METASTASES TO BREAST
     Dosage: 1 POSOLOGIC UNIT, MONTHLY
     Route: 042
     Dates: start: 20040101, end: 20040930
  2. AROMASIN [Concomitant]
     Dosage: 25 MG
     Route: 048

REACTIONS (2)
  - ORAL SURGERY [None]
  - OSTEONECROSIS [None]
